FAERS Safety Report 10210456 (Version 1)
Quarter: 2014Q2

REPORT INFORMATION
  Report Type: Spontaneous
  Country: US (occurrence: US)
  Receive Date: 20140602
  Receipt Date: 20140602
  Transmission Date: 20141212
  Serious: No
  Sender: FDA-Public Use
  Company Number: US-009507513-1405USA005031

PATIENT
  Sex: Female

DRUGS (3)
  1. AFRIN NO DRIP [Suspect]
     Indication: THROAT IRRITATION
     Dosage: UNK, UNKNOWN
     Route: 045
  2. AFRIN NO DRIP [Suspect]
     Indication: LACRIMATION INCREASED
  3. AFRIN NO DRIP [Suspect]
     Indication: SNEEZING

REACTIONS (2)
  - Drug ineffective for unapproved indication [Unknown]
  - Off label use [Unknown]
